FAERS Safety Report 10549138 (Version 1)
Quarter: 2014Q4

REPORT INFORMATION
  Report Type: Spontaneous
  Country: US (occurrence: None)
  Receive Date: 20141016
  Receipt Date: 20141016
  Transmission Date: 20150529
  Serious: No
  Sender: FDA-Public Use
  Company Number: CABO-14004470

PATIENT
  Age: 53 Year
  Sex: Male

DRUGS (3)
  1. COMETRIQ [Suspect]
     Active Substance: CABOZANTINIB S-MALATE
     Indication: PROSTATE CANCER
     Route: 048
     Dates: start: 20140627
  2. HYDROCHLOROTHIAZIDE. [Concomitant]
     Active Substance: HYDROCHLOROTHIAZIDE
  3. LOSARTAN(LOSARTAN) [Concomitant]
     Active Substance: LOSARTAN

REACTIONS (5)
  - Hyperhidrosis [None]
  - Pain [None]
  - Heart rate increased [None]
  - Skin discolouration [None]
  - Dysphonia [None]

NARRATIVE: CASE EVENT DATE: 2014
